FAERS Safety Report 13897403 (Version 2)
Quarter: 2017Q3

REPORT INFORMATION
  Report Type: Spontaneous
  Country: US (occurrence: US)
  Receive Date: 20170823
  Receipt Date: 20170911
  Transmission Date: 20171127
  Serious: Yes (Hospitalization)
  Sender: FDA-Public Use
  Company Number: US-BTG INTERNATIONAL LTD-2017BTG01333

PATIENT
  Sex: Male

DRUGS (1)
  1. CROFAB [Suspect]
     Active Substance: CROTALIDAE POLYVALENT IMMUNE FAB (OVINE)
     Indication: SNAKE BITE
     Dosage: 14 VIALS (4 VIALS, 2 VIALS 6HRS LATER, 2 VIALS 6HRS LATER; ON 08-AUG, 4 VIALS, 2 VIALS 6HRS LATER)
     Dates: start: 20170807, end: 20170808

REACTIONS (1)
  - Drug ineffective [Unknown]

NARRATIVE: CASE EVENT DATE: 20170807
